FAERS Safety Report 7524700-X (Version None)
Quarter: 2011Q2

REPORT INFORMATION
  Report Type: 
  Country: None (occurrence: None)
  Receive Date: 20110606
  Receipt Date: 20110603
  Transmission Date: 20111010
  Serious: Yes (Other)
  Sender: FDA-Public Use
  Company Number: US-PFIZER INC-2011115501

PATIENT
  Sex: Female
  Weight: 95.7 kg

DRUGS (8)
  1. SIMVASTATIN [Concomitant]
     Indication: BLOOD CHOLESTEROL INCREASED
     Dosage: UNK
  2. FUROSEMIDE [Concomitant]
     Dosage: UNK
  3. PROTONIX [Suspect]
     Indication: HIATUS HERNIA
  4. PROTONIX [Suspect]
     Indication: GASTROOESOPHAGEAL REFLUX DISEASE
     Dosage: 40 MG, DAILY
     Route: 048
     Dates: start: 20040101
  5. WARFARIN [Concomitant]
     Indication: ATRIAL FIBRILLATION
     Dosage: 4MG ON MONDAY AND FRIDAY AND 5MG ON REST OF THE DAYS
  6. ENALAPRIL [Concomitant]
     Indication: HYPERTENSION
     Dosage: UNK
  7. BUPROPION [Concomitant]
     Indication: DEPRESSION
     Dosage: UNK
  8. ATENOLOL [Concomitant]
     Indication: HYPERTENSION
     Dosage: UNK

REACTIONS (5)
  - DRUG INEFFECTIVE [None]
  - HYPERTHYROIDISM [None]
  - CHEST PAIN [None]
  - PANIC ATTACK [None]
  - STRESS [None]
